FAERS Safety Report 9530831 (Version 1)
Quarter: 2013Q3

REPORT INFORMATION
  Report Type: Spontaneous
  Country: CA (occurrence: CA)
  Receive Date: 20130918
  Receipt Date: 20130918
  Transmission Date: 20140515
  Serious: Yes (Other)
  Sender: FDA-Public Use
  Company Number: CA-009507513-1309CAN006040

PATIENT
  Age: 51 Year
  Sex: Female
  Weight: 133 kg

DRUGS (5)
  1. SINGULAIR [Suspect]
     Indication: PRODUCT USED FOR UNKNOWN INDICATION
     Dosage: 10 MG, QD
     Route: 048
  2. DIOVAN [Concomitant]
     Indication: PRODUCT USED FOR UNKNOWN INDICATION
  3. RHINOCORT (BECLOMETHASONE DIPROPIONATE) [Concomitant]
     Indication: PRODUCT USED FOR UNKNOWN INDICATION
  4. SYMBICORT TURBUHALER [Concomitant]
     Indication: PRODUCT USED FOR UNKNOWN INDICATION
  5. VENTOLIN (ALBUTEROL) [Concomitant]
     Indication: PRODUCT USED FOR UNKNOWN INDICATION

REACTIONS (6)
  - Abdominal pain upper [Recovered/Resolved]
  - Depression [Recovered/Resolved]
  - Hallucination, visual [Recovered/Resolved]
  - Insomnia [Recovered/Resolved]
  - Nightmare [Recovered/Resolved]
  - Tearfulness [Recovered/Resolved]
